FAERS Safety Report 6700480-2 (Version None)
Quarter: 2010Q2

REPORT INFORMATION
  Report Type: 
  Country: None (occurrence: None)
  Receive Date: 20100428
  Receipt Date: 20100419
  Transmission Date: 20101027
  Serious: Yes (Hospitalization)
  Sender: FDA-Public Use
  Company Number: GXKR2010SI04439

PATIENT
  Sex: Male
  Weight: 100 kg

DRUGS (6)
  1. OLIVIN (NGX) [Suspect]
     Indication: CARDIAC FAILURE
     Dosage: 20 MG, BID
     Route: 048
  2. ALDACTONE [Suspect]
     Indication: CARDIAC FAILURE
     Dosage: 25 MG, QD
     Route: 048
  3. SINVACOR [Concomitant]
     Dosage: 10 MG, QD
     Route: 048
  4. ACETYLSALICYLIC ACID [Concomitant]
     Dosage: 100 MG, QD
     Route: 048
  5. CORYOL [Concomitant]
     Route: 048
  6. AMLOPIN [Concomitant]
     Dosage: 10 MG, QD
     Route: 048

REACTIONS (3)
  - DYSPNOEA EXERTIONAL [None]
  - HYPERKALAEMIA [None]
  - PAIN IN EXTREMITY [None]
